FAERS Safety Report 6204463-0 (Version None)
Quarter: 2009Q2

REPORT INFORMATION
  Report Type: 
  Country: None (occurrence: None)
  Receive Date: 20090521
  Receipt Date: 20090508
  Transmission Date: 20091009
  Serious: Yes (Other)
  Sender: FDA-Public Use
  Company Number: PAR_02983_2009

PATIENT
  Sex: Female

DRUGS (17)
  1. IBUPROFEN [Suspect]
     Indication: PAIN
     Dosage: 600 MG, DF ORAL
     Route: 048
     Dates: start: 20090226, end: 20090227
  2. RIVAROXABAN [Suspect]
     Indication: POSTOPERATIVE CARE
     Dosage: 10 MG QD
     Dates: start: 20090226
  3. ENOXAPARIN SODIUM [Suspect]
     Indication: DRUG USE FOR UNKNOWN INDICATION
     Dosage: 40 MG SUBCUTANEOUS
     Route: 058
     Dates: start: 20090226, end: 20090226
  4. PANTOZOL [Concomitant]
  5. CELEBREX [Concomitant]
  6. RADEDORM [Concomitant]
  7. ZOLPIDEM TARTRATE [Concomitant]
  8. OXYGESIC [Concomitant]
  9. DYNASTAT [Concomitant]
  10. NOVALGIN [Concomitant]
  11. NORMOFUNDIN X [Concomitant]
  12. WUERZBURGER SCHMERZTROPFEN [Concomitant]
  13. DIPIDOLOR [Concomitant]
  14. RADEDORM [Concomitant]
  15. ELEKTROLYT [Concomitant]
  16. CEFUROXIME [Concomitant]
  17. E 153 [Concomitant]

REACTIONS (5)
  - DRUG INTERACTION [None]
  - EFFUSION [None]
  - PAIN IN EXTREMITY [None]
  - PROTHROMBIN TIME PROLONGED [None]
  - SUBCUTANEOUS HAEMATOMA [None]
